FAERS Safety Report 18158116 (Version 2)
Quarter: 2020Q3

REPORT INFORMATION
  Report Type: Spontaneous
  Country: US (occurrence: US)
  Receive Date: 20200817
  Receipt Date: 20200910
  Transmission Date: 20201103
  Serious: No
  Sender: FDA-Public Use
  Company Number: US-GLAXOSMITHKLINE-US2020156563

PATIENT
  Age: 66 Year
  Sex: Female

DRUGS (2)
  1. ZEJULA [Suspect]
     Active Substance: NIRAPARIB
     Indication: LYMPHOEDEMA
     Dosage: 200 MG, QD
     Dates: start: 20200802
  2. ZEJULA [Suspect]
     Active Substance: NIRAPARIB
     Indication: BREAST CANCER FEMALE
     Dosage: 100 MG, QD
     Dates: start: 20200803

REACTIONS (9)
  - Tremor [Recovered/Resolved]
  - Chills [Recovered/Resolved]
  - Decreased activity [Unknown]
  - Off label use [Unknown]
  - Blood magnesium decreased [Unknown]
  - Product use in unapproved indication [Unknown]
  - Back pain [Recovered/Resolved]
  - Diarrhoea [Recovered/Resolved]
  - Nausea [Recovered/Resolved]

NARRATIVE: CASE EVENT DATE: 20200824
